FAERS Safety Report 20855536 (Version 2)
Quarter: 2022Q2

REPORT INFORMATION
  Report Type: Spontaneous
  Country: US (occurrence: US)
  Receive Date: 20220520
  Receipt Date: 20220622
  Transmission Date: 20220720
  Serious: No
  Sender: FDA-Public Use
  Company Number: US-KARYOPHARM-2022KPT000555

PATIENT

DRUGS (10)
  1. XPOVIO [Suspect]
     Active Substance: SELINEXOR
     Indication: Brain neoplasm malignant
     Dosage: 80 MG, WEEKLY
     Route: 048
     Dates: start: 202205, end: 202206
  2. AMLODIPINE [Concomitant]
     Active Substance: AMLODIPINE BESYLATE
  3. ATORVASTATIN [Concomitant]
     Active Substance: ATORVASTATIN
  4. ATOVAQUONE [Concomitant]
     Active Substance: ATOVAQUONE
  5. AVASTIN [Concomitant]
     Active Substance: BEVACIZUMAB
  6. DEXAMETHASONE [Concomitant]
     Active Substance: DEXAMETHASONE
  7. LACOSAMIDE [Concomitant]
     Active Substance: LACOSAMIDE
  8. LEVETIRACETAM [Concomitant]
     Active Substance: LEVETIRACETAM
  9. METOPROLOL [Concomitant]
     Active Substance: METOPROLOL
  10. ZOFRAN [Concomitant]
     Active Substance: ONDANSETRON HYDROCHLORIDE

REACTIONS (7)
  - Urinary incontinence [Unknown]
  - White blood cell count decreased [Unknown]
  - Dysstasia [Unknown]
  - Fatigue [Unknown]
  - Platelet count decreased [Unknown]
  - Off label use [Unknown]
  - Drug ineffective [Unknown]

NARRATIVE: CASE EVENT DATE: 20220501
